FAERS Safety Report 18766646 (Version 40)
Quarter: 2022Q3

REPORT INFORMATION
  Report Type: Other
  Country: GB (occurrence: GB)
  Receive Date: 20210121
  Receipt Date: 20220927
  Transmission Date: 20221026
  Serious: Yes (Death, Hospitalization, Other)
  Sender: FDA-Public Use
  Company Number: GB-MACLEODS PHARMACEUTICALS US LTD-MAC2021029839

PATIENT

DRUGS (187)
  1. ARIPIPRAZOLE [Suspect]
     Active Substance: ARIPIPRAZOLE
     Indication: Schizophrenia
     Dosage: 5 MILLIGRAM
     Route: 048
  2. ARIPIPRAZOLE [Suspect]
     Active Substance: ARIPIPRAZOLE
     Dosage: UNK
     Route: 065
  3. ARIPIPRAZOLE [Suspect]
     Active Substance: ARIPIPRAZOLE
     Dosage: 5 MILLIGRAM
     Route: 048
  4. ARIPIPRAZOLE [Suspect]
     Active Substance: ARIPIPRAZOLE
     Dosage: 5 MILLIGRAM
     Route: 048
  5. ARIPIPRAZOLE [Suspect]
     Active Substance: ARIPIPRAZOLE
     Dosage: 5 MILLIGRAM
     Route: 048
  6. ARIPIPRAZOLE [Suspect]
     Active Substance: ARIPIPRAZOLE
     Dosage: 5 MILLIGRAM
     Route: 048
  7. ARIPIPRAZOLE [Suspect]
     Active Substance: ARIPIPRAZOLE
     Dosage: 5 MILLIGRAM
     Route: 048
  8. OLANZAPINE [Suspect]
     Active Substance: OLANZAPINE
     Indication: Schizophrenia
     Dosage: UNK
     Route: 065
  9. OLANZAPINE [Suspect]
     Active Substance: OLANZAPINE
     Dosage: 10 MILLIGRAM
     Route: 048
  10. OLANZAPINE [Suspect]
     Active Substance: OLANZAPINE
     Dosage: 15 MILLIGRAM
     Route: 048
     Dates: start: 20040217
  11. OLANZAPINE [Suspect]
     Active Substance: OLANZAPINE
     Dosage: 15 MILLIGRAM
     Route: 065
     Dates: start: 20060704
  12. OLANZAPINE [Suspect]
     Active Substance: OLANZAPINE
     Dosage: 2.5 MILLIGRAM
     Route: 048
     Dates: start: 20080823
  13. OLANZAPINE [Suspect]
     Active Substance: OLANZAPINE
     Dosage: 10 MILLIGRAM
     Route: 048
  14. OLANZAPINE [Suspect]
     Active Substance: OLANZAPINE
     Dosage: 10 MILLIGRAM
     Route: 048
  15. OLANZAPINE [Suspect]
     Active Substance: OLANZAPINE
     Dosage: UNK
     Route: 065
  16. OLANZAPINE [Suspect]
     Active Substance: OLANZAPINE
     Dosage: 10 MILLIGRAM
     Route: 048
  17. OLANZAPINE [Suspect]
     Active Substance: OLANZAPINE
     Dosage: UNK
     Route: 065
  18. OLANZAPINE [Suspect]
     Active Substance: OLANZAPINE
     Dosage: 10 MILLIGRAM
     Route: 065
  19. OLANZAPINE [Suspect]
     Active Substance: OLANZAPINE
     Dosage: UNK
     Route: 065
  20. OLANZAPINE [Suspect]
     Active Substance: OLANZAPINE
     Dosage: 10 MILLIGRAM
     Route: 065
  21. OLANZAPINE [Suspect]
     Active Substance: OLANZAPINE
     Dosage: UNK
     Route: 065
  22. HALOPERIDOL [Suspect]
     Active Substance: HALOPERIDOL
     Indication: Schizophrenia
     Dosage: 5 MILLIGRAM, BID, 10 MG QD
     Route: 065
  23. HALOPERIDOL [Suspect]
     Active Substance: HALOPERIDOL
     Dosage: 20 MILLIGRAM, BID (10 MILLIGRAM, BID)
     Route: 048
  24. HALOPERIDOL [Suspect]
     Active Substance: HALOPERIDOL
     Dosage: 5 MILLIGRAM, BID, 10 MG QD
     Route: 048
  25. HALOPERIDOL [Suspect]
     Active Substance: HALOPERIDOL
     Dosage: 20 MILLIGRAM, BID, 40 MG QD
     Route: 048
  26. HALOPERIDOL [Suspect]
     Active Substance: HALOPERIDOL
     Dosage: 10 MILLIGRAM, BID, 20 MG QD
     Route: 065
  27. HALOPERIDOL [Suspect]
     Active Substance: HALOPERIDOL
     Dosage: 10 MILLIGRAM, BID, 20 MG QD
     Route: 065
  28. HALOPERIDOL [Suspect]
     Active Substance: HALOPERIDOL
     Dosage: 10 MILLIGRAM, BID, 20 MG QD
     Route: 065
  29. HALOPERIDOL [Suspect]
     Active Substance: HALOPERIDOL
     Dosage: 20 MILLIGRAM, BID
     Route: 048
  30. HALOPERIDOL [Suspect]
     Active Substance: HALOPERIDOL
     Dosage: 5 MILLIGRAM, BID, 10 MG QD
     Route: 048
  31. HALOPERIDOL [Suspect]
     Active Substance: HALOPERIDOL
     Dosage: 5 MILLIGRAM, BID, 10 MG QD
     Route: 065
  32. HALOPERIDOL [Suspect]
     Active Substance: HALOPERIDOL
     Dosage: 5 MILLIGRAM, BID, 10 MG QD
     Route: 048
  33. HALOPERIDOL [Suspect]
     Active Substance: HALOPERIDOL
     Dosage: 5 MILLIGRAM, BID, 10 MG QD
     Route: 048
  34. HALOPERIDOL [Suspect]
     Active Substance: HALOPERIDOL
     Dosage: 10 MILLIGRAM, BID, 20 MG QD
     Route: 065
  35. HALOPERIDOL [Suspect]
     Active Substance: HALOPERIDOL
     Dosage: 5 MILLIGRAM, BID, 10 MG QD
     Route: 048
  36. CHLORPROMAZINE [Suspect]
     Active Substance: CHLORPROMAZINE
     Indication: Schizophrenia
     Dosage: 75 MILLIGRAM
     Route: 048
  37. CHLORPROMAZINE [Suspect]
     Active Substance: CHLORPROMAZINE
     Dosage: 75 MILLIGRAM
     Route: 048
  38. CHLORPROMAZINE [Suspect]
     Active Substance: CHLORPROMAZINE
     Dosage: 75 MILLIGRAM
     Route: 048
  39. CHLORPROMAZINE [Suspect]
     Active Substance: CHLORPROMAZINE
     Dosage: 75 MILLIGRAM
     Route: 048
  40. CHLORPROMAZINE [Suspect]
     Active Substance: CHLORPROMAZINE
     Dosage: 75 MILLIGRAM
     Route: 048
  41. CHLORPROMAZINE [Suspect]
     Active Substance: CHLORPROMAZINE
     Dosage: 75 MILLIGRAM
     Route: 048
  42. CHLORPROMAZINE [Suspect]
     Active Substance: CHLORPROMAZINE
     Dosage: UNK
     Route: 065
  43. CLOZARIL [Suspect]
     Active Substance: CLOZAPINE
     Indication: Schizophrenia
     Dosage: 100 MILLIGRAM, QD, IN THE MORNING
     Route: 048
  44. CLOZARIL [Suspect]
     Active Substance: CLOZAPINE
     Indication: Schizophrenia
     Dosage: 50 MILLIGRAM, QD
     Route: 048
  45. CLOZARIL [Suspect]
     Active Substance: CLOZAPINE
     Dosage: 275 MILLIGRAM, QD, AT NIGHT, PM
     Route: 048
  46. CLOZARIL [Suspect]
     Active Substance: CLOZAPINE
     Dosage: 200 MILLIGRAM, BID
     Route: 048
     Dates: start: 20191209, end: 20191223
  47. CLOZARIL [Suspect]
     Active Substance: CLOZAPINE
     Dosage: 275 MILLIGRAM, QD, PM
     Route: 048
     Dates: start: 20200521, end: 2020
  48. CLOZARIL [Suspect]
     Active Substance: CLOZAPINE
     Dosage: 200 MILLIGRAM, BID, 400 MG QD
     Route: 048
  49. CLOZARIL [Suspect]
     Active Substance: CLOZAPINE
     Dosage: 400 MILLIGRAM, QD
     Route: 048
     Dates: start: 20201207
  50. CLOZARIL [Suspect]
     Active Substance: CLOZAPINE
     Dosage: 245 MILLIGRAM, QD, IN THE MORNING
     Route: 048
     Dates: start: 2011
  51. CLOZARIL [Suspect]
     Active Substance: CLOZAPINE
     Dosage: UNK
     Route: 048
     Dates: start: 20100823
  52. CLOZARIL [Suspect]
     Active Substance: CLOZAPINE
     Dosage: 300 MILLIGRAM, QD, AT NIGHT, PM
     Route: 048
  53. CLOZARIL [Suspect]
     Active Substance: CLOZAPINE
     Dosage: UNK
     Route: 048
     Dates: start: 20191223, end: 20191223
  54. CLOZARIL [Suspect]
     Active Substance: CLOZAPINE
     Dosage: 400 MILLIGRAM, QD
     Route: 048
  55. CLOZARIL [Suspect]
     Active Substance: CLOZAPINE
     Dosage: UNK
     Route: 048
     Dates: start: 20200521
  56. CLOZARIL [Suspect]
     Active Substance: CLOZAPINE
     Dosage: 245 MILLIGRAM
     Route: 048
     Dates: start: 20191209, end: 20191223
  57. CLOZARIL [Suspect]
     Active Substance: CLOZAPINE
     Dosage: 200 MILLIGRAM, BID, 400 MG QD
     Route: 048
  58. CLOZARIL [Suspect]
     Active Substance: CLOZAPINE
     Dosage: UNK
     Route: 048
     Dates: start: 20191209, end: 20191223
  59. CLOZARIL [Suspect]
     Active Substance: CLOZAPINE
     Dosage: 400 MILLIGRAM, BID, 800 MG QD
     Route: 048
  60. CLOZARIL [Suspect]
     Active Substance: CLOZAPINE
     Dosage: 1 DOSAGE FORM, EACH MORNING
     Route: 048
     Dates: start: 2011
  61. CLOZARIL [Suspect]
     Active Substance: CLOZAPINE
     Dosage: 400 MILLIGRAM, BID
     Route: 048
  62. CLOZARIL [Suspect]
     Active Substance: CLOZAPINE
     Dosage: UNK
     Route: 048
  63. CLOZARIL [Suspect]
     Active Substance: CLOZAPINE
     Dosage: 200 MILLIGRAM, BID, 400 MG QD
     Route: 065
  64. CLOZARIL [Suspect]
     Active Substance: CLOZAPINE
     Dosage: 400 MILLIGRAM, QD
     Route: 048
  65. CLOZARIL [Suspect]
     Active Substance: CLOZAPINE
     Dosage: 300 MILLIGRAM, QD, AT NIGHT, PM
     Route: 065
  66. CLOZARIL [Suspect]
     Active Substance: CLOZAPINE
     Dosage: 300 MILLIGRAM, QD, AT NIGHT, PM
     Route: 065
  67. CLOZARIL [Suspect]
     Active Substance: CLOZAPINE
     Dosage: 200 MILLIGRAM, BID, 400 MG QD
     Route: 065
  68. CLOZARIL [Suspect]
     Active Substance: CLOZAPINE
     Dosage: 50 MILLIGRAM, QD, MIDDAY, TABLET
     Route: 065
  69. CLOZARIL [Suspect]
     Active Substance: CLOZAPINE
     Dosage: 275 MILLIGRAM, QD, AT NIGHT, PM
     Route: 065
  70. CLOZARIL [Suspect]
     Active Substance: CLOZAPINE
     Dosage: 100 MILLIGRAM, QD, IN THE MORNING
     Route: 065
  71. CLOZARIL [Suspect]
     Active Substance: CLOZAPINE
     Dosage: 50 MILLIGRAM, QD, MIDDAY, TABLET
     Route: 065
  72. CLOZARIL [Suspect]
     Active Substance: CLOZAPINE
     Dosage: 275 MILLIGRAM, QD, AT NIGHT, PM
     Route: 065
  73. CLOZARIL [Suspect]
     Active Substance: CLOZAPINE
     Dosage: 50 MILLIGRAM, QD, MIDDAY, TABLET
     Route: 065
  74. CLOZARIL [Suspect]
     Active Substance: CLOZAPINE
     Dosage: UNK
     Route: 048
  75. CLOZARIL [Suspect]
     Active Substance: CLOZAPINE
     Dosage: 275 MILLIGRAM, QD, AT NIGHT, PM
     Route: 065
  76. CLOZARIL [Suspect]
     Active Substance: CLOZAPINE
     Dosage: 200 MILLIGRAM, BID, 400 MG QD
     Route: 065
  77. CLOZARIL [Suspect]
     Active Substance: CLOZAPINE
     Dosage: 245 MILLIGRAM, QD, IN THE MORNING
     Route: 065
     Dates: start: 2011
  78. CLOZARIL [Suspect]
     Active Substance: CLOZAPINE
     Dosage: 200 MILLIGRAM, BID, 400 MG QD
     Route: 048
  79. CLOZARIL [Suspect]
     Active Substance: CLOZAPINE
     Dosage: 100 MILLIGRAM, QD, IN THE MORNING
     Route: 065
  80. CLOZARIL [Suspect]
     Active Substance: CLOZAPINE
     Dosage: 100 MILLIGRAM, QD, IN THE MORNING
     Route: 065
  81. CLOZARIL [Suspect]
     Active Substance: CLOZAPINE
     Dosage: 300 MILLIGRAM, QD, AT NIGHT, PM
     Route: 048
  82. CLOZARIL [Suspect]
     Active Substance: CLOZAPINE
     Dosage: 100 MILLIGRAM, QD, IN THE MORNING
     Route: 048
  83. CLOZARIL [Suspect]
     Active Substance: CLOZAPINE
     Dosage: 200 MILLIGRAM, BID, 400 MG QD
     Route: 065
  84. CLOZARIL [Suspect]
     Active Substance: CLOZAPINE
     Dosage: 300 MILLIGRAM, QD, AT NIGHT, PM
     Route: 065
  85. CLOZARIL [Suspect]
     Active Substance: CLOZAPINE
     Dosage: 200 MILLIGRAM, BID, 400 MG QD
     Route: 048
  86. CLOZARIL [Suspect]
     Active Substance: CLOZAPINE
     Dosage: 50 MILLIGRAM, QD, MIDDAY, TABLET
     Route: 048
  87. CLOZARIL [Suspect]
     Active Substance: CLOZAPINE
     Dosage: 50 MILLIGRAM, QD, MIDDAY, TABLET
     Route: 065
  88. CLOZARIL [Suspect]
     Active Substance: CLOZAPINE
     Dosage: 100 MILLIGRAM, QD, IN THE MORNING
     Route: 065
  89. CLOZARIL [Suspect]
     Active Substance: CLOZAPINE
     Dosage: 300 MILLIGRAM, QD, AT NIGHT, PM
     Route: 065
  90. CLOZARIL [Suspect]
     Active Substance: CLOZAPINE
     Dosage: 275 MILLIGRAM, QD, AT NIGHT, PM
     Route: 065
  91. CLOZARIL [Suspect]
     Active Substance: CLOZAPINE
     Dosage: 275 MILLIGRAM, QD, AT NIGHT, PM
     Route: 065
  92. CLOZARIL [Suspect]
     Active Substance: CLOZAPINE
     Dosage: 400 MILLIGRAM, BID
     Route: 048
  93. ZUCLOPENTHIXOL [Suspect]
     Active Substance: ZUCLOPENTHIXOL
     Indication: Product used for unknown indication
     Dosage: UNK, INJECTION
     Route: 065
  94. ZUCLOPENTHIXOL [Suspect]
     Active Substance: ZUCLOPENTHIXOL
     Dosage: 400 MILLIGRAM, CYCLIC, BIWEEKLY, INJECTION
     Route: 065
     Dates: start: 20030204, end: 20040217
  95. ZUCLOPENTHIXOL [Suspect]
     Active Substance: ZUCLOPENTHIXOL
     Dosage: 400 MILLIGRAM, Q.W., WEEKLY, INJECTION
     Route: 065
     Dates: start: 20040217, end: 20040601
  96. ZUCLOPENTHIXOL [Suspect]
     Active Substance: ZUCLOPENTHIXOL
     Dosage: 400 MILLIGRAM, CYCLIC, BIWEEKLY, INJECTION
     Route: 065
     Dates: start: 20040601, end: 20041018
  97. ZUCLOPENTHIXOL [Suspect]
     Active Substance: ZUCLOPENTHIXOL
     Dosage: 300 MILLIGRAM, QD, INJECTION
     Route: 030
     Dates: start: 20091009
  98. ZUCLOPENTHIXOL [Suspect]
     Active Substance: ZUCLOPENTHIXOL
     Dosage: 400 MILLIGRAM, CYCLIC, BIWEEKLY, INJECTION
     Route: 065
     Dates: start: 20041018, end: 20041018
  99. ZUCLOPENTHIXOL [Suspect]
     Active Substance: ZUCLOPENTHIXOL
     Dosage: 300 MILLIGRAM, Q.W., INJECTION
     Route: 030
     Dates: start: 20091009
  100. ZUCLOPENTHIXOL [Suspect]
     Active Substance: ZUCLOPENTHIXOL
     Dosage: 300 MILLIGRAM, Q.W., INJECTION
     Route: 030
     Dates: start: 20091018
  101. ZUCLOPENTHIXOL [Suspect]
     Active Substance: ZUCLOPENTHIXOL
     Dosage: 400 MILLIGRAM (EVERY WEEK)
     Route: 065
  102. LITHIUM [Suspect]
     Active Substance: LITHIUM
     Indication: Product used for unknown indication
     Dosage: 1 GRAM
     Route: 048
  103. LITHIUM [Suspect]
     Active Substance: LITHIUM
     Dosage: 2 GRAM
     Route: 065
  104. LITHIUM [Suspect]
     Active Substance: LITHIUM
     Dosage: UNK
     Route: 065
  105. LITHIUM [Suspect]
     Active Substance: LITHIUM
     Dosage: 2 GRAM
     Route: 065
  106. LITHIUM [Suspect]
     Active Substance: LITHIUM
     Dosage: 1 GRAM
     Route: 065
  107. LITHIUM [Suspect]
     Active Substance: LITHIUM
     Dosage: 1 GRAM
     Route: 065
  108. LITHIUM [Suspect]
     Active Substance: LITHIUM
     Dosage: 1 GRAM
     Route: 065
  109. LITHIUM [Suspect]
     Active Substance: LITHIUM
     Dosage: 2 GRAM
     Route: 065
  110. LITHIUM [Suspect]
     Active Substance: LITHIUM
     Dosage: 1 MILLIGRAM
     Route: 048
  111. LITHIUM [Suspect]
     Active Substance: LITHIUM
     Dosage: 1 GRAM
     Route: 065
  112. LITHIUM [Suspect]
     Active Substance: LITHIUM
     Dosage: 1 GRAM
     Route: 065
  113. LITHIUM [Suspect]
     Active Substance: LITHIUM
     Dosage: 1 GRAM
     Route: 065
  114. LITHIUM [Suspect]
     Active Substance: LITHIUM
     Dosage: 6 MILLIGRAM, QD
     Route: 048
  115. LORAZEPAM [Suspect]
     Active Substance: LORAZEPAM
     Indication: Schizophrenia
     Dosage: 1 MILLIGRAM
     Route: 048
  116. LORAZEPAM [Suspect]
     Active Substance: LORAZEPAM
     Dosage: 1 MILLIGRAM
     Route: 048
  117. LORAZEPAM [Suspect]
     Active Substance: LORAZEPAM
     Dosage: 1 MILLIGRAM
     Route: 048
  118. LORAZEPAM [Suspect]
     Active Substance: LORAZEPAM
     Dosage: 1 MILLIGRAM
     Route: 048
  119. LORAZEPAM [Suspect]
     Active Substance: LORAZEPAM
     Dosage: 1 MILLIGRAM
     Route: 048
  120. LORAZEPAM [Suspect]
     Active Substance: LORAZEPAM
     Dosage: 1 MILLIGRAM
     Route: 048
  121. RISPERDAL [Suspect]
     Active Substance: RISPERIDONE
     Indication: Schizophrenia
     Dosage: 2 GRAM, QD
     Route: 065
  122. RISPERDAL [Suspect]
     Active Substance: RISPERIDONE
     Dosage: 1 MILLIGRAM, QD
     Route: 065
  123. RISPERDAL [Suspect]
     Active Substance: RISPERIDONE
     Dosage: 2 MILLIGRAM, BID, 4 MG QD
     Route: 065
  124. RISPERDAL [Suspect]
     Active Substance: RISPERIDONE
     Dosage: 3 MILLIGRAM, BID, 6 MG QD
     Route: 048
  125. RISPERDAL [Suspect]
     Active Substance: RISPERIDONE
     Dosage: 2 MILLIGRAM, BID
     Route: 065
  126. RISPERDAL [Suspect]
     Active Substance: RISPERIDONE
     Dosage: 1 GRAM, QD
     Route: 065
  127. RISPERDAL [Suspect]
     Active Substance: RISPERIDONE
     Dosage: 3 MILLIGRAM, BID, 6 MG QD
     Route: 048
  128. RISPERDAL [Suspect]
     Active Substance: RISPERIDONE
     Dosage: 3 MILLIGRAM, BID, 6 MG QD
     Route: 065
  129. RISPERDAL [Suspect]
     Active Substance: RISPERIDONE
     Dosage: 1 GRAM, QD
     Route: 065
  130. RISPERDAL [Suspect]
     Active Substance: RISPERIDONE
     Dosage: 1 MILLIGRAM, QD
     Route: 065
  131. RISPERDAL [Suspect]
     Active Substance: RISPERIDONE
     Dosage: 3 MILLIGRAM, BID, 6 MG QD
     Route: 065
  132. RISPERDAL [Suspect]
     Active Substance: RISPERIDONE
     Dosage: 2 MILLIGRAM, BID, 4 MG QD
     Route: 065
  133. RISPERDAL [Suspect]
     Active Substance: RISPERIDONE
     Dosage: 2 MILLIGRAM, BID, 4 MG QD
     Route: 065
  134. RISPERDAL [Suspect]
     Active Substance: RISPERIDONE
     Dosage: 2 MILLIGRAM, BID, 4 MG QD
     Route: 065
  135. RISPERDAL [Suspect]
     Active Substance: RISPERIDONE
     Dosage: 2 MILLIGRAM, BID
     Route: 065
  136. RISPERDAL [Suspect]
     Active Substance: RISPERIDONE
     Dosage: 2 MILLIGRAM, BID
     Route: 065
  137. RISPERDAL [Suspect]
     Active Substance: RISPERIDONE
     Dosage: 1 GRAM, QD
     Route: 065
  138. RISPERDAL [Suspect]
     Active Substance: RISPERIDONE
     Dosage: 3 MILLIGRAM, BID, 6 MG QD
     Route: 048
  139. RISPERDAL [Suspect]
     Active Substance: RISPERIDONE
     Dosage: 1 GRAM, QD
     Route: 065
  140. RISPERDAL [Suspect]
     Active Substance: RISPERIDONE
     Dosage: 3 MILLIGRAM, BID, 6 MG QD
     Route: 065
  141. RISPERDAL [Suspect]
     Active Substance: RISPERIDONE
     Dosage: 1 MILLIGRAM, QD
     Route: 065
  142. RISPERDAL [Suspect]
     Active Substance: RISPERIDONE
     Dosage: 3 MILLIGRAM, BID, 6 MG QD
     Route: 065
  143. RISPERDAL [Suspect]
     Active Substance: RISPERIDONE
     Dosage: 1 MILLIGRAM, QD
     Route: 065
  144. RISPERDAL [Suspect]
     Active Substance: RISPERIDONE
     Dosage: 1 GRAM, QD
     Route: 065
  145. RISPERDAL [Suspect]
     Active Substance: RISPERIDONE
     Dosage: 1 MILLIGRAM, QD
     Route: 065
  146. RISPERDAL [Suspect]
     Active Substance: RISPERIDONE
     Dosage: 2 MILLIGRAM, BID
     Route: 065
  147. RISPERDAL [Suspect]
     Active Substance: RISPERIDONE
     Dosage: 1 MILLIGRAM, QD
     Route: 065
  148. RISPERDAL [Suspect]
     Active Substance: RISPERIDONE
     Dosage: 2 MILLIGRAM, BID
     Route: 065
  149. RISPERDAL [Suspect]
     Active Substance: RISPERIDONE
     Dosage: 3 MILLIGRAM, BID, 6 MG QD
     Route: 048
  150. RISPERDAL [Suspect]
     Active Substance: RISPERIDONE
     Dosage: 3 MILLIGRAM, BID, 6 MG QD
     Route: 065
  151. RISPERDAL [Suspect]
     Active Substance: RISPERIDONE
     Dosage: 3 MILLIGRAM, BID, 6 MG QD
     Route: 065
  152. RISPERDAL [Suspect]
     Active Substance: RISPERIDONE
     Dosage: 2 MILLIGRAM, BID
     Route: 065
  153. RISPERDAL [Suspect]
     Active Substance: RISPERIDONE
     Dosage: 2 MILLIGRAM, BID
     Route: 065
  154. RISPERDAL [Suspect]
     Active Substance: RISPERIDONE
     Dosage: 1 GRAM, QD
     Route: 065
  155. RISPERDAL [Suspect]
     Active Substance: RISPERIDONE
     Dosage: 1 MILLIGRAM, QD
     Route: 065
  156. RISPERDAL [Suspect]
     Active Substance: RISPERIDONE
     Dosage: 3 MILLIGRAM, BID, 6 MG QD
     Route: 065
  157. RISPERDAL [Suspect]
     Active Substance: RISPERIDONE
     Dosage: 1 GRAM, QD
     Route: 065
  158. RISPERDAL [Suspect]
     Active Substance: RISPERIDONE
     Dosage: UNK
     Route: 065
  159. TRASTUZUMAB [Suspect]
     Active Substance: TRASTUZUMAB
     Indication: Breast cancer metastatic
     Dosage: 609 MILLIGRAM; ONCE IN 3 WEEKS (Q3WK)
     Route: 065
     Dates: start: 20150930
  160. TRASTUZUMAB [Suspect]
     Active Substance: TRASTUZUMAB
     Dosage: 1218 MILLIGRAM, Q.W.
     Route: 065
     Dates: start: 20150930
  161. PACLITAXEL [Suspect]
     Active Substance: PACLITAXEL
     Indication: Breast cancer metastatic
     Dosage: UNK UNK, Q.W.; CUMULATIVE DOSE: 428.57 MG
     Route: 065
     Dates: start: 20151111, end: 20151222
  162. PACLITAXEL [Suspect]
     Active Substance: PACLITAXEL
     Dosage: 120 MILLIGRAM, Q.W.; CUMULATIVE DOSE: 377.142
     Route: 065
     Dates: start: 20151223, end: 20151223
  163. PACLITAXEL [Suspect]
     Active Substance: PACLITAXEL
     Dosage: 120 MILLIGRAM, Q.W.; 171.428571
     Route: 065
     Dates: start: 20151111
  164. PERTUZUMAB [Suspect]
     Active Substance: PERTUZUMAB
     Indication: Breast cancer metastatic
     Dosage: 840 MILLIGRAM; ONCE IN THREE WEEKS; 1281.66666
     Route: 065
     Dates: start: 20150930
  165. PERTUZUMAB [Suspect]
     Active Substance: PERTUZUMAB
     Dosage: 420 MILLIGRAM; ONCE IN THREE WEEKS
     Route: 065
     Dates: start: 20151021
  166. PERTUZUMAB [Suspect]
     Active Substance: PERTUZUMAB
     Dosage: 2 UNIT, Q.W.
     Route: 065
  167. CHLORPHENIRAMINE MALEATE [Concomitant]
     Active Substance: CHLORPHENIRAMINE MALEATE
     Indication: Product used for unknown indication
     Dosage: 10 MILLIGRAM, Q.W.
     Route: 065
     Dates: start: 20151111
  168. CHOLECALCIFEROL [Concomitant]
     Active Substance: CHOLECALCIFEROL
     Indication: Product used for unknown indication
     Dosage: 2 DOSAGE FORM, QD
     Route: 065
  169. CALCIUM\CHOLECALCIFEROL [Concomitant]
     Active Substance: CALCIUM\CHOLECALCIFEROL
     Indication: Product used for unknown indication
     Dosage: 2 DOSAGE FORM, QD
     Route: 065
  170. AMOXICILLIN\CLAVULANATE POTASSIUM [Concomitant]
     Active Substance: AMOXICILLIN\CLAVULANATE POTASSIUM
     Indication: Febrile neutropenia
     Dosage: 625 MILLIGRAM, QID
     Route: 065
     Dates: start: 20151122
  171. AMOXICILLIN\CLAVULANATE POTASSIUM [Concomitant]
     Active Substance: AMOXICILLIN\CLAVULANATE POTASSIUM
     Dosage: 625 MILLIGRAM; (EVERY 0.33 DAYS)
     Route: 065
     Dates: start: 20151122, end: 20151125
  172. DULOXETINE [Concomitant]
     Active Substance: DULOXETINE
     Indication: Product used for unknown indication
     Dosage: UNK
     Route: 065
  173. GENTAMICIN [Concomitant]
     Active Substance: GENTAMICIN
     Indication: Febrile neutropenia
     Dosage: UNK
     Route: 065
     Dates: start: 20151121, end: 201511
  174. LEVOFLOXACIN [Concomitant]
     Active Substance: LEVOFLOXACIN
     Indication: Febrile neutropenia
     Dosage: 500 MILLIGRAM, QD
     Route: 065
     Dates: start: 20151125
  175. MIRTAZAPINE [Concomitant]
     Active Substance: MIRTAZAPINE
     Indication: Product used for unknown indication
     Dosage: 15 MILLIGRAM, QD
     Route: 065
     Dates: start: 201510
  176. MORPHINE [Concomitant]
     Active Substance: MORPHINE
     Indication: Pain
     Dosage: 30 MILLIGRAM
     Route: 065
     Dates: start: 201509
  177. MORPHINE [Concomitant]
     Active Substance: MORPHINE
     Dosage: 60 MILLIGRAM, QD
     Route: 065
     Dates: start: 201509
  178. MORPHINE SULFATE [Concomitant]
     Active Substance: MORPHINE SULFATE
     Indication: Product used for unknown indication
     Dosage: 10 MILLIGRAM
     Route: 065
     Dates: start: 201509
  179. ACETAMINOPHEN [Concomitant]
     Active Substance: ACETAMINOPHEN
     Indication: Pain
     Dosage: 500 MILLIGRAM
     Route: 065
     Dates: start: 20150127
  180. PREGABALIN [Concomitant]
     Active Substance: PREGABALIN
     Indication: Product used for unknown indication
     Dosage: 150 MILLIGRAM, QD
     Route: 065
     Dates: start: 201509
  181. PREGABALIN [Concomitant]
     Active Substance: PREGABALIN
     Dosage: 75 MILLIGRAM, BID; EVERY 0.5 DAY
     Route: 065
     Dates: start: 201509
  182. RANITIDINE [Concomitant]
     Active Substance: RANITIDINE
     Indication: Gastrooesophageal reflux disease
     Dosage: 50 MILLIGRAM, Q.W.
     Route: 065
  183. RANITIDINE [Concomitant]
     Active Substance: RANITIDINE
     Dosage: 50 MILLIGRAM, Q.W.
     Route: 065
     Dates: start: 20151111
  184. TAZOBACTAM SODIUM [Concomitant]
     Active Substance: TAZOBACTAM SODIUM
     Indication: Febrile neutropenia
     Dosage: UNK
     Route: 065
     Dates: start: 20151121
  185. PIPERACILLIN SODIUM\TAZOBACTAM SODIUM [Concomitant]
     Active Substance: PIPERACILLIN SODIUM\TAZOBACTAM SODIUM
     Indication: Febrile neutropenia
     Dosage: UNK
     Route: 065
     Dates: start: 20151121, end: 201511
  186. DENOSUMAB [Concomitant]
     Active Substance: DENOSUMAB
     Indication: Gastrooesophageal reflux disease
     Dosage: 120 MILLIGRAM
     Route: 065
     Dates: start: 20150930
  187. DENOSUMAB [Concomitant]
     Active Substance: DENOSUMAB
     Indication: Metastases to bone

REACTIONS (30)
  - Neoplasm progression [Fatal]
  - Delusion of grandeur [Fatal]
  - Hallucination, auditory [Fatal]
  - Affective disorder [Fatal]
  - Lymphocyte count decreased [Fatal]
  - Psychotic disorder [Fatal]
  - Extrapyramidal disorder [Fatal]
  - Platelet count decreased [Fatal]
  - Leukopenia [Fatal]
  - Neutropenia [Fatal]
  - Fatigue [Fatal]
  - Lymphocyte count abnormal [Fatal]
  - Neutrophil count increased [Fatal]
  - Alopecia [Fatal]
  - Cellulitis [Fatal]
  - Diarrhoea [Fatal]
  - Dyspepsia [Fatal]
  - Mucosal inflammation [Fatal]
  - Nausea [Fatal]
  - Nasal discomfort [Fatal]
  - Off label use [Fatal]
  - Off label use [Fatal]
  - Incorrect dose administered [Fatal]
  - Schizophrenia [Fatal]
  - COVID-19 [Fatal]
  - Seizure [Fatal]
  - Neuropathy peripheral [Fatal]
  - Hospitalisation [Unknown]
  - SARS-CoV-2 test positive [Fatal]
  - Fatigue [Fatal]

NARRATIVE: CASE EVENT DATE: 20151101
